FAERS Safety Report 13899966 (Version 3)
Quarter: 2017Q3

REPORT INFORMATION
  Report Type: Report from Study
  Country: DE (occurrence: DE)
  Receive Date: 20170824
  Receipt Date: 20170907
  Transmission Date: 20171127
  Serious: Yes (Death, Hospitalization)
  Sender: FDA-Public Use
  Company Number: DE-CELGENEUS-DEU-20170607985

PATIENT
  Age: 75 Year
  Sex: Female
  Weight: 55 kg

DRUGS (10)
  1. ABRAXANE [Suspect]
     Active Substance: PACLITAXEL
     Indication: BREAST CANCER
     Route: 041
     Dates: start: 20160816, end: 20170316
  2. TAMOXIFEN [Concomitant]
     Active Substance: TAMOXIFEN
     Indication: HORMONE THERAPY
     Route: 065
     Dates: start: 20110707, end: 20151210
  3. LACTULOSE. [Concomitant]
     Active Substance: LACTULOSE
     Indication: DECREASED APPETITE
     Route: 065
     Dates: start: 20160927, end: 20161101
  4. ZOMETA [Concomitant]
     Active Substance: ZOLEDRONIC ACID
     Indication: OSTEOPOROSIS
     Route: 065
     Dates: start: 20090303
  5. DRONABINOL. [Concomitant]
     Active Substance: DRONABINOL
     Indication: NAUSEA
     Route: 065
     Dates: start: 20160620
  6. FRESUBIN [Concomitant]
     Active Substance: AMINO ACIDS\DEXTROSE\ELECTROLYTES NOS\SOYBEAN OIL\VITAMINS
     Indication: DECREASED APPETITE
     Route: 065
     Dates: start: 20160815
  7. ZOMETA [Concomitant]
     Active Substance: ZOLEDRONIC ACID
     Indication: METASTASES TO BONE
  8. DRONABINOL. [Concomitant]
     Active Substance: DRONABINOL
     Indication: PAIN
  9. MCP [Concomitant]
     Active Substance: METOCLOPRAMIDE HYDROCHLORIDE
     Indication: LIVER DISORDER
     Route: 065
     Dates: start: 20160726, end: 20160815
  10. RAMIPRIL. [Concomitant]
     Active Substance: RAMIPRIL
     Indication: HYPERTENSION
     Route: 065
     Dates: start: 20160308

REACTIONS (2)
  - Breast cancer metastatic [Fatal]
  - Neuropathy peripheral [Unknown]

NARRATIVE: CASE EVENT DATE: 20170209
